FAERS Safety Report 8884310 (Version 1)
Quarter: 2012Q4

REPORT INFORMATION
  Report Type: 
  Country: US (occurrence: US)
  Receive Date: 20121102
  Receipt Date: 20121102
  Transmission Date: 20130627
  Serious: No
  Sender: FDA-Public Use
  Company Number: US-ASTRAZENECA-2012SE21138

PATIENT
  Age: 42 Year
  Sex: Male
  Weight: 86.2 kg

DRUGS (2)
  1. CRESTOR [Suspect]
     Indication: BLOOD CHOLESTEROL INCREASED
     Route: 048
     Dates: start: 2011, end: 201203
  2. VITAMIN D [Concomitant]

REACTIONS (4)
  - Antinuclear antibody positive [Unknown]
  - Arthralgia [Recovered/Resolved]
  - Insomnia [Unknown]
  - Musculoskeletal pain [Unknown]
